FAERS Safety Report 25682520 (Version 1)
Quarter: 2025Q3

REPORT INFORMATION
  Report Type: Report from Study
  Country: ZA (occurrence: ZA)
  Receive Date: 20250814
  Receipt Date: 20250814
  Transmission Date: 20251020
  Serious: Yes (Other)
  Sender: ALEXION PHARMACEUTICALS
  Company Number: ZA-AstraZeneca-CH-00930141A

PATIENT
  Age: 67 Year
  Sex: Male

DRUGS (3)
  1. BUDESONIDE\FORMOTEROL [Suspect]
     Active Substance: BUDESONIDE\FORMOTEROL
     Indication: Asthma
  2. Omiflux [Concomitant]
     Indication: Ulcer
  3. Pantocid [Concomitant]
     Indication: Ulcer

REACTIONS (2)
  - Gallbladder rupture [Unknown]
  - Infection [Unknown]
